FAERS Safety Report 20980128 (Version 1)
Quarter: 2022Q2

REPORT INFORMATION
  Report Type: Spontaneous
  Country: US (occurrence: US)
  Receive Date: 20220620
  Receipt Date: 20220620
  Transmission Date: 20220721
  Serious: Yes (Other)
  Sender: FDA-Public Use
  Company Number: US-CADILA HEALTHCARE LIMITED-US-ZYDUS-079360

PATIENT

DRUGS (3)
  1. LAMOTRIGINE [Suspect]
     Active Substance: LAMOTRIGINE
     Indication: Substance-induced psychotic disorder
     Dosage: 100 MILLIGRAM, BID
     Route: 065
  2. ROPINIROLE [Suspect]
     Active Substance: ROPINIROLE
     Indication: Substance-induced psychotic disorder
     Dosage: 0.25 MILLIGRAM
     Route: 065
  3. CLONAZEPAM [Suspect]
     Active Substance: CLONAZEPAM
     Indication: Substance-induced psychotic disorder
     Dosage: 1 MILLIGRAM, QD
     Route: 065

REACTIONS (2)
  - Mania [Unknown]
  - Abnormal behaviour [Unknown]
